FAERS Safety Report 5611026-4 (Version None)
Quarter: 2008Q1

REPORT INFORMATION
  Report Type: 
  Country: None (occurrence: None)
  Receive Date: 20080201
  Receipt Date: 20080123
  Transmission Date: 20080703
  Serious: Yes (Other)
  Sender: FDA-Public Use
  Company Number: B0504675A

PATIENT
  Age: 29 Year
  Sex: Female

DRUGS (2)
  1. COMBIVIR [Suspect]
     Indication: DRUG USE FOR UNKNOWN INDICATION
     Dosage: 900MG UNKNOWN
     Route: 065
  2. NEVIRAPINE [Concomitant]

REACTIONS (3)
  - ANAEMIA [None]
  - DRUG TOXICITY [None]
  - NAIL DISCOLOURATION [None]
